FAERS Safety Report 8092582-6 (Version None)
Quarter: 2012Q1

REPORT INFORMATION
  Report Type: 
  Country: None (occurrence: None)
  Receive Date: 20120128
  Receipt Date: 20110726
  Transmission Date: 20120608
  Serious: No
  Sender: FDA-Public Use
  Company Number: US-ABBOTT-11P-163-0841521-00

PATIENT
  Sex: Female
  Weight: 61.29 kg

DRUGS (3)
  1. HUMIRA [Suspect]
     Indication: ANKYLOSING SPONDYLITIS
     Dates: start: 20110715
  2. VITAMIN TAB [Concomitant]
     Indication: VITAMIN SUPPLEMENTATION
  3. HYDROCODONE BITARTRATE [Concomitant]
     Indication: PAIN

REACTIONS (1)
  - INJECTION SITE HAEMORRHAGE [None]
